FAERS Safety Report 20144195 (Version 1)
Quarter: 2021Q4

REPORT INFORMATION
  Report Type: Spontaneous
  Country: US (occurrence: US)
  Receive Date: 20211203
  Receipt Date: 20211203
  Transmission Date: 20220303
  Serious: Yes (Other)
  Sender: FDA-Public Use
  Company Number: US-Accord-246243

PATIENT
  Age: 15 Year
  Sex: Male

DRUGS (3)
  1. CARBOPLATIN [Suspect]
     Active Substance: CARBOPLATIN
     Indication: Intracranial germ cell tumour
  2. ETOPOSIDE [Suspect]
     Active Substance: ETOPOSIDE
     Indication: Intracranial germ cell tumour
  3. IFOSFAMIDE [Suspect]
     Active Substance: IFOSFAMIDE
     Indication: Intracranial germ cell tumour

REACTIONS (2)
  - Diabetes insipidus [Unknown]
  - Off label use [Unknown]
